FAERS Safety Report 4950921-6 (Version None)
Quarter: 2006Q1

REPORT INFORMATION
  Report Type: 
  Country: None (occurrence: None)
  Receive Date: 20060201
  Receipt Date: 20051008
  Transmission Date: 20060701
  Serious: No
  Sender: FDA-Public Use
  Company Number: 2005PV002938

PATIENT
  Age: 63 Year
  Sex: Female
  Weight: 99.7913 kg

DRUGS (6)
  1. BYETTA [Suspect]
     Indication: DIABETES MELLITUS
     Dosage: 5 MCG;BID;SC
     Route: 058
     Dates: start: 20051006
  2. METFORMIN [Concomitant]
  3. DIOVAN HCT [Concomitant]
  4. LOVASTATIN [Concomitant]
  5. LEVOTHYROXINE SODIUM [Concomitant]
  6. PROGESTERONE [Concomitant]

REACTIONS (3)
  - DECREASED APPETITE [None]
  - INJECTION SITE HAEMORRHAGE [None]
  - NAUSEA [None]
